FAERS Safety Report 8660866 (Version 3)
Quarter: 2012Q4

REPORT INFORMATION
  Report Type: Report from Study
  Country: GB (occurrence: GB)
  Receive Date: 20120711
  Receipt Date: 20120924
  Transmission Date: 20130627
  Serious: Yes (Hospitalization)
  Sender: FDA-Public Use
  Company Number: GB-ABBOTT-12P-167-0944520-00

PATIENT
  Age: 25 Year
  Sex: Female

DRUGS (3)
  1. KALETRA TABLETS [Suspect]
     Indication: HIV INFECTION
     Route: 048
     Dates: start: 20120305, end: 20120319
  2. EPZICOM [Concomitant]
     Indication: HIV INFECTION
     Dosage: daily dose=1 tab
     Route: 048
     Dates: start: 20120305, end: 20120319
  3. COMBIVIR [Concomitant]
     Indication: HIV INFECTION
     Dosage: daily dose= 2 Tab
     Route: 048
     Dates: start: 20120319

REACTIONS (3)
  - Hepatocellular injury [Unknown]
  - Aspartate aminotransferase increased [Unknown]
  - Alanine aminotransferase increased [Unknown]
